FAERS Safety Report 4911906-9 (Version None)
Quarter: 2006Q1

REPORT INFORMATION
  Report Type: 
  Country: None (occurrence: None)
  Receive Date: 20060215
  Receipt Date: 20060207
  Transmission Date: 20060701
  Serious: Yes (Hospitalization)
  Sender: FDA-Public Use
  Company Number: SE-BRISTOL-MYERS SQUIBB COMPANY-13273990

PATIENT
  Age: 41 Year
  Sex: Female

DRUGS (13)
  1. TAXOL [Suspect]
     Dates: start: 20051209, end: 20051209
  2. MORPHINE [Concomitant]
     Indication: ABDOMINAL PAIN
     Route: 037
     Dates: start: 20051211, end: 20051211
  3. MARCAINE [Concomitant]
     Indication: ABDOMINAL PAIN
     Route: 037
     Dates: start: 20051211, end: 20051211
  4. ALVEDON [Concomitant]
  5. NEXIUM [Concomitant]
  6. PRIMPERAN TAB [Concomitant]
  7. HYDROMORPHONE HCL [Concomitant]
  8. STESOLID [Concomitant]
  9. PROGYNON [Concomitant]
  10. TAVEGYL [Concomitant]
  11. DUROFERON [Concomitant]
  12. LAXOBERAL [Concomitant]
  13. CAFFEINE [Concomitant]

REACTIONS (1)
  - LEUKOENCEPHALOMYELITIS [None]
